FAERS Safety Report 8155595-1 (Version None)
Quarter: 2012Q1

REPORT INFORMATION
  Report Type: 
  Country: None (occurrence: None)
  Receive Date: 20120222
  Receipt Date: 20120217
  Transmission Date: 20120608
  Serious: Yes (Other)
  Sender: FDA-Public Use
  Company Number: US-PFIZER INC-2012043610

PATIENT
  Sex: Female
  Weight: 71.7 kg

DRUGS (2)
  1. LYRICA [Suspect]
     Indication: FIBROMYALGIA
     Dosage: 100 MG, 2X/DAY
     Route: 048
     Dates: start: 20110701
  2. METHOTREXATE [Concomitant]
     Indication: ARTHRITIS
     Dosage: UNK

REACTIONS (1)
  - WEIGHT INCREASED [None]
